FAERS Safety Report 19349973 (Version 2)
Quarter: 2021Q2

REPORT INFORMATION
  Report Type: Other
  Country: US (occurrence: US)
  Receive Date: 20210531
  Receipt Date: 20210621
  Transmission Date: 20210717
  Serious: Yes (Hospitalization, Other)
  Sender: FDA-Public Use
  Company Number: US-INTERCEPT-PM2021001761

PATIENT
  Age: 72 Year
  Sex: Female

DRUGS (1)
  1. OCALIVA [Suspect]
     Active Substance: OBETICHOLIC ACID
     Indication: PRIMARY BILIARY CHOLANGITIS
     Dosage: 5 MILLIGRAM, QD
     Route: 048
     Dates: start: 20210407

REACTIONS (7)
  - Biliary colic [Recovered/Resolved]
  - Cholelithiasis [Unknown]
  - Blood alkaline phosphatase abnormal [Unknown]
  - Pruritus [Unknown]
  - Muscle spasms [Recovered/Resolved]
  - Cholecystitis [Recovered/Resolved]
  - Abdominal pain lower [Recovered/Resolved]

NARRATIVE: CASE EVENT DATE: 2021
